FAERS Safety Report 6231511-4 (Version None)
Quarter: 2009Q2

REPORT INFORMATION
  Report Type: 
  Country: None (occurrence: None)
  Receive Date: 20090616
  Receipt Date: 20090609
  Transmission Date: 20091009
  Serious: Yes (Death)
  Sender: FDA-Public Use
  Company Number: B0575583A

PATIENT
  Sex: Male
  Weight: 26.4 kg

DRUGS (10)
  1. ARRANON [Suspect]
     Dosage: 325MG PER DAY
     Route: 042
     Dates: start: 20090430, end: 20090430
  2. ELSPAR [Suspect]
     Indication: NEOPLASM MALIGNANT
     Dates: start: 20090409, end: 20090425
  3. VINCRISTINE SULFATE [Concomitant]
     Indication: NEOPLASM MALIGNANT
     Route: 042
     Dates: start: 20090408, end: 20090408
  4. CYCLOPHOSPHAMIDE [Concomitant]
     Indication: NEOPLASM MALIGNANT
     Route: 042
     Dates: start: 20090408, end: 20090422
  5. FILDESIN [Concomitant]
     Indication: NEOPLASM MALIGNANT
     Route: 042
     Dates: start: 20090422, end: 20090422
  6. SOLU-MEDROL [Concomitant]
     Route: 042
     Dates: start: 20090428, end: 20090430
  7. ONDANSETRON [Concomitant]
     Route: 042
     Dates: start: 20090430, end: 20090430
  8. FLUCONAL [Concomitant]
     Route: 048
     Dates: start: 20090430, end: 20090430
  9. PREDONINE [Concomitant]
     Route: 048
     Dates: start: 20090430, end: 20090430
  10. SULFAMETHOXAZOLE AND TRIMETHOPRIM [Concomitant]
     Route: 048
     Dates: start: 20090428, end: 20090430

REACTIONS (3)
  - FAECES DISCOLOURED [None]
  - GASTROINTESTINAL HAEMORRHAGE [None]
  - HEPATIC STEATOSIS [None]
